FAERS Safety Report 21098067 (Version 3)
Quarter: 2022Q4

REPORT INFORMATION
  Report Type: Spontaneous
  Country: GR (occurrence: GR)
  Receive Date: 20220719
  Receipt Date: 20221201
  Transmission Date: 20230113
  Serious: Yes (Hospitalization, Other)
  Sender: FDA-Public Use
  Company Number: GR-002147023-NVSC2022GR147666

PATIENT
  Age: 46 Year
  Sex: Male

DRUGS (2)
  1. AMOXICILLIN\CLAVULANIC ACID [Suspect]
     Active Substance: AMOXICILLIN\CLAVULANIC ACID
     Indication: Product used for unknown indication
     Dosage: UNK
     Route: 065
  2. CREATINE [Concomitant]
     Active Substance: CREATINE
     Indication: Hypertonia
     Dosage: UNK
     Route: 065

REACTIONS (12)
  - Autoimmune hepatitis [Recovering/Resolving]
  - Subacute hepatic failure [Recovering/Resolving]
  - Ascites [Unknown]
  - Hepatitis acute [Unknown]
  - Encephalopathy [Unknown]
  - Portal fibrosis [Unknown]
  - Hepatic necrosis [Unknown]
  - Cholestasis [Unknown]
  - Hepatic lesion [Unknown]
  - Jaundice [Unknown]
  - Hyperammonaemia [Unknown]
  - International normalised ratio increased [Unknown]
